FAERS Safety Report 19972839 (Version 1)
Quarter: 2021Q4

REPORT INFORMATION
  Report Type: Spontaneous
  Country: US (occurrence: US)
  Receive Date: 20211019
  Receipt Date: 20211019
  Transmission Date: 20220303
  Serious: Yes (Disabling)
  Sender: FDA-Public Use
  Company Number: None

PATIENT
  Age: 42 Year
  Sex: Male
  Weight: 74.25 kg

DRUGS (2)
  1. FINASTERIDE [Suspect]
     Active Substance: FINASTERIDE
     Indication: Alopecia
     Dosage: ?          QUANTITY:90 TABLET(S);
     Route: 048
     Dates: start: 20200712, end: 20200816
  2. DIAZEPAM [Concomitant]
     Active Substance: DIAZEPAM

REACTIONS (6)
  - Anxiety [None]
  - Withdrawal syndrome [None]
  - Poor quality sleep [None]
  - Quality of life decreased [None]
  - Libido increased [None]
  - Depression [None]

NARRATIVE: CASE EVENT DATE: 20200818
